FAERS Safety Report 5038930-2 (Version None)
Quarter: 2006Q2

REPORT INFORMATION
  Report Type: 
  Country: None (occurrence: None)
  Receive Date: 20060627
  Receipt Date: 20060627
  Transmission Date: 20061013
  Serious: Yes (Hospitalization)
  Sender: FDA-Public Use
  Company Number: None

PATIENT
  Age: 64 Year
  Sex: Female
  Weight: 86 kg

DRUGS (11)
  1. OXALIPLATIN 130 MG/M2 IV DAY 1 Q 3 WKS [Suspect]
     Indication: SMALL INTESTINE CARCINOMA METASTATIC
     Dosage: 242 MG IV
     Route: 042
     Dates: start: 20060519
  2. OXALIPLATIN 130 MG/M2 IV DAY 1 Q 3 WKS [Suspect]
     Indication: SMALL INTESTINE CARCINOMA METASTATIC
     Dosage: 242 MG IV
     Route: 042
     Dates: start: 20060612
  3. CAPECITABINE 1500 MG/M2 PO X 14 DAYS [Suspect]
     Dosage: 1500 MG PO
     Route: 048
     Dates: start: 20060519, end: 20060602
  4. CAPECITABINE 1500 MG/M2 PO X 14 DAYS [Suspect]
     Dosage: 1500 MG PO
     Route: 048
     Dates: start: 20060612
  5. COZAAR [Concomitant]
  6. PROPRANOLOL [Concomitant]
  7. CREON-10 [Concomitant]
  8. METFORMIN [Concomitant]
  9. LEVOTHYROXINE SODIUM [Concomitant]
  10. NEXIUM [Concomitant]
  11. ASPIRIN [Concomitant]

REACTIONS (3)
  - DEHYDRATION [None]
  - INFECTION [None]
  - URINARY TRACT INFECTION [None]
